FAERS Safety Report 8952654 (Version 2)
Quarter: 2013Q2

REPORT INFORMATION
  Report Type: Spontaneous
  Country: US (occurrence: US)
  Receive Date: 20121205
  Receipt Date: 20130604
  Transmission Date: 20140414
  Serious: No
  Sender: FDA-Public Use
  Company Number: US-MYLANLABS-2012S1022272

PATIENT
  Age: 40 Year
  Sex: Female

DRUGS (4)
  1. DESLORATADINE TABLETS [Suspect]
     Indication: MULTIPLE ALLERGIES
     Route: 048
     Dates: start: 20120901, end: 20120909
  2. SYNTHROID [Concomitant]
     Indication: HYPOTHYROIDISM
  3. FLONASE [Concomitant]
     Indication: MULTIPLE ALLERGIES
  4. NECON /00013701/ [Concomitant]
     Indication: CONTRACEPTION

REACTIONS (2)
  - Dry mouth [Recovered/Resolved]
  - Reaction to drug excipients [Recovered/Resolved]
